FAERS Safety Report 17404452 (Version 2)
Quarter: 2020Q1

REPORT INFORMATION
  Report Type: Spontaneous
  Country: US (occurrence: US)
  Receive Date: 20200211
  Receipt Date: 20200214
  Transmission Date: 20200409
  Serious: No
  Sender: FDA-Public Use
  Company Number: US-009507513-2001USA009660

PATIENT
  Age: 14 Year
  Sex: Female

DRUGS (1)
  1. ASMANEX [Suspect]
     Active Substance: MOMETASONE FUROATE
     Indication: ASTHMA
     Dosage: AS NEEDED
     Route: 055
     Dates: start: 2018

REACTIONS (5)
  - Incorrect dose administered [Unknown]
  - Product dose omission [Unknown]
  - Product availability issue [Unknown]
  - Adverse event [Recovered/Resolved]
  - Inappropriate schedule of product administration [Unknown]

NARRATIVE: CASE EVENT DATE: 201908
